FAERS Safety Report 8970901 (Version 1)
Quarter: 2012Q4

REPORT INFORMATION
  Report Type: 
  Country: FR (occurrence: FR)
  Receive Date: 20121217
  Receipt Date: 20121217
  Transmission Date: 20130627
  Serious: Yes (Life-Threatening)
  Sender: FDA-Public Use
  Company Number: FR-ASTRAZENECA-2012SE93534

PATIENT
  Age: 27628 Day
  Sex: Female

DRUGS (12)
  1. TRACRIUM [Suspect]
     Indication: INDUCTION OF ANAESTHESIA
     Route: 042
     Dates: start: 20111020, end: 20111020
  2. DALACINE [Concomitant]
     Indication: ANTIBIOTIC PROPHYLAXIS
     Dates: start: 20111020
  3. DALACINE [Concomitant]
     Indication: ANTIBIOTIC PROPHYLAXIS
  4. GENTALLINE [Concomitant]
     Indication: ANTIBIOTIC PROPHYLAXIS
     Route: 042
     Dates: start: 20111020
  5. GENTALLINE [Concomitant]
     Indication: ANTIBIOTIC PROPHYLAXIS
     Route: 042
     Dates: start: 20111020
  6. LODINE [Concomitant]
  7. LANZOR [Concomitant]
  8. TRIMEBUTINE [Concomitant]
  9. DIPRIVAN [Suspect]
     Indication: INDUCTION OF ANAESTHESIA
     Route: 042
     Dates: start: 20111020, end: 20111020
  10. SUFENTA [Suspect]
     Indication: INDUCTION OF ANAESTHESIA
     Route: 042
     Dates: start: 20111020, end: 20111020
  11. HYPNOVEL [Suspect]
     Indication: INDUCTION OF ANAESTHESIA
     Route: 042
     Dates: start: 20111020, end: 20111020
  12. KETAMINE [Suspect]
     Indication: INDUCTION OF ANAESTHESIA
     Route: 042
     Dates: start: 20111020, end: 20111020

REACTIONS (1)
  - Anaphylactic shock [Recovered/Resolved]
